FAERS Safety Report 9222916 (Version 1)
Quarter: 2013Q1

REPORT INFORMATION
  Report Type: Spontaneous
  Country: US (occurrence: None)
  Receive Date: 20120914
  Receipt Date: 20120914
  Transmission Date: 20140127
  Serious: Yes (Hospitalization)
  Sender: FDA-Public Use
  Company Number: JPI-P-017808

PATIENT
  Age: 21 Year
  Sex: Male

DRUGS (4)
  1. XYREM (500 MILLIGRAM/MILLILITERS, SOLUTION) (SODIUM OXYBATE) [Suspect]
     Indication: NARCOLEPSY
     Route: 048
     Dates: start: 20090520
  2. AMPHETAMINE, DEXTROAMPHETAMINE MIXED SALTS [Concomitant]
  3. PALIPERIDONE PALMITATE [Concomitant]
  4. HYDROXYZINE [Concomitant]

REACTIONS (16)
  - Psychotic disorder [None]
  - Paranoia [None]
  - Hallucination [None]
  - Agitation [None]
  - Anger [None]
  - Abnormal behaviour [None]
  - Muscle spasms [None]
  - Confusional state [None]
  - Muscle spasms [None]
  - Disorientation [None]
  - Decreased appetite [None]
  - Anxiety [None]
  - Condition aggravated [None]
  - Nervousness [None]
  - Akathisia [None]
  - Insomnia [None]
